FAERS Safety Report 8620480-5 (Version None)
Quarter: 2012Q3

REPORT INFORMATION
  Report Type: 
  Country: None (occurrence: None)
  Receive Date: 20120824
  Receipt Date: 20120816
  Transmission Date: 20120928
  Serious: Yes (Hospitalization)
  Sender: FDA-Public Use
  Company Number: FR-009507513-1208FRA008971

PATIENT

DRUGS (8)
  1. BOCEPREVIR [Suspect]
     Indication: HEPATITIS C
     Dosage: UNK, UNKNOWN
     Dates: start: 20120531, end: 20120726
  2. REBETOL [Suspect]
     Indication: HEPATITIS C
     Dosage: 200 MG, QID
     Dates: start: 20120503
  3. PANTOPRAZOLE SODIUM [Concomitant]
     Indication: OESOPHAGEAL ULCER
     Dosage: 40 MG, QD
     Dates: start: 20080626
  4. PEGINTERFERON ALFA-2B [Suspect]
     Indication: HEPATITIS C
     Dosage: 80 MICROGRAM, QW
     Dates: start: 20120503
  5. NORVIR [Concomitant]
     Indication: HIV INFECTION
     Dosage: 100 MG, QD
     Dates: start: 20111212
  6. ISENTRESS [Concomitant]
     Indication: HIV INFECTION
     Dosage: 400 MG, BID
     Dates: start: 20100719
  7. EMTRIVA [Concomitant]
     Indication: HIV INFECTION
     Dosage: 200 MG, QD
     Dates: start: 20100719
  8. REYATAZ [Concomitant]
     Indication: HIV INFECTION
     Dosage: 300 MG, QD
     Dates: start: 20111212

REACTIONS (1)
  - HOSPITALISATION [None]
